FAERS Safety Report 22533921 (Version 5)
Quarter: 2024Q1

REPORT INFORMATION
  Report Type: Spontaneous
  Country: US (occurrence: US)
  Receive Date: 20230608
  Receipt Date: 20240312
  Transmission Date: 20240410
  Serious: No
  Sender: FDA-Public Use
  Company Number: US-BRISTOL-MYERS SQUIBB COMPANY-2023-080599

PATIENT
  Age: 63 Year
  Sex: Female

DRUGS (2)
  1. ORENCIA [Suspect]
     Active Substance: ABATACEPT
     Indication: Rheumatoid arthritis
     Route: 058
     Dates: start: 202305
  2. ORENCIA [Suspect]
     Active Substance: ABATACEPT
     Dosage: BATCH NUM: ACM1479  EXP DATE: 31-AUG-2025
     Route: 058
     Dates: start: 20240212

REACTIONS (5)
  - General physical health deterioration [Unknown]
  - Arthralgia [Unknown]
  - Joint swelling [Unknown]
  - Food allergy [Unknown]
  - Pain [Unknown]
